FAERS Safety Report 6928565-6 (Version None)
Quarter: 2010Q3

REPORT INFORMATION
  Report Type: 
  Country: None (occurrence: None)
  Receive Date: 20100809
  Receipt Date: 20090928
  Transmission Date: 20110219
  Serious: No
  Sender: FDA-Public Use
  Company Number: US-000941

PATIENT
  Sex: Male
  Weight: 55.3388 kg

DRUGS (5)
  1. DEGARELIX (240 MG, 80 MG) [Suspect]
     Indication: PRODUCT USED FOR UNKNOWN INDICATION
     Dosage: (240 MG TOTAL SUBCUTANEOUS), (80 MG 1X/MONTH SUBCUTANEOUS)
     Route: 058
     Dates: start: 20090826
  2. DEGARELIX (240 MG, 80 MG) [Suspect]
     Indication: PRODUCT USED FOR UNKNOWN INDICATION
     Dosage: (240 MG TOTAL SUBCUTANEOUS), (80 MG 1X/MONTH SUBCUTANEOUS)
     Route: 058
     Dates: start: 20090928
  3. CELEXA [Concomitant]
  4. LORTAB [Concomitant]
  5. CARAFATE [Concomitant]

REACTIONS (4)
  - ABDOMINAL PAIN [None]
  - ERYTHEMA [None]
  - PAIN [None]
  - SWELLING [None]
